FAERS Safety Report 15362364 (Version 3)
Quarter: 2019Q1

REPORT INFORMATION
  Report Type: Spontaneous
  Country: GB (occurrence: GB)
  Receive Date: 20180907
  Receipt Date: 20190322
  Transmission Date: 20190417
  Serious: Yes (Other)
  Sender: FDA-Public Use
  Company Number: GB-MYLANLABS-2017M1082367

PATIENT
  Age: 68 Year
  Sex: Female

DRUGS (1)
  1. HYDROXYCHLOROQUINE [Suspect]
     Active Substance: HYDROXYCHLOROQUINE
     Indication: SJOGREN^S SYNDROME
     Dosage: UNK UNK, QD, ( MORE THAN 1500 G ON VARYING DOSES OVER TIME 200-400MG DAILY)
     Route: 065

REACTIONS (6)
  - Retinal toxicity [Unknown]
  - Visual field defect [Unknown]
  - Visual acuity reduced [Unknown]
  - Intentional product misuse [Unknown]
  - Off label use [Unknown]
  - Maculopathy [Unknown]
